FAERS Safety Report 5906470-1 (Version None)
Quarter: 2008Q4

REPORT INFORMATION
  Report Type: 
  Country: None (occurrence: None)
  Receive Date: 20081002
  Receipt Date: 20080926
  Transmission Date: 20090506
  Serious: No
  Sender: FDA-Public Use
  Company Number: US-B.I. PHARMACEUTICALS,INC./RIDGEFIELD-2008-BP-12630BP

PATIENT
  Sex: Female
  Weight: 68 kg

DRUGS (4)
  1. SPIRIVA [Suspect]
     Indication: CHRONIC OBSTRUCTIVE PULMONARY DISEASE
     Route: 055
     Dates: start: 20060331
  2. OXYGEN [Concomitant]
     Route: 055
     Dates: start: 20040428
  3. ALBUTEROL [Concomitant]
     Route: 055
     Dates: start: 20060228
  4. SYMBICORT [Concomitant]
     Dosage: 4PUF
     Route: 055
     Dates: start: 20080410

REACTIONS (1)
  - DYSPNOEA [None]
